FAERS Safety Report 7596444-X (Version None)
Quarter: 2011Q3

REPORT INFORMATION
  Report Type: 
  Country: None (occurrence: None)
  Receive Date: 20110708
  Receipt Date: 20110623
  Transmission Date: 20111222
  Serious: Yes (Hospitalization)
  Sender: FDA-Public Use
  Company Number: US-BIOGENIDEC-2011BI002898

PATIENT
  Age: 46 Year
  Sex: Female
  Weight: 88 kg

DRUGS (2)
  1. TYSABRI [Suspect]
     Indication: MULTIPLE SCLEROSIS
     Route: 042
     Dates: start: 20060101, end: 20100101
  2. TYSABRI [Suspect]
     Route: 042
     Dates: start: 20070118, end: 20110113

REACTIONS (4)
  - STAPHYLOCOCCAL INFECTION [None]
  - CELLULITIS [None]
  - ABSCESS LIMB [None]
  - DRUG HYPERSENSITIVITY [None]
